FAERS Safety Report 5240997-3 (Version None)
Quarter: 2007Q1

REPORT INFORMATION
  Report Type: 
  Country: None (occurrence: None)
  Receive Date: 20070219
  Receipt Date: 20070209
  Transmission Date: 20070707
  Serious: Yes (Other)
  Sender: FDA-Public Use
  Company Number: FR-ABBOTT-07P-056-0358909-00

PATIENT
  Age: 65 Year
  Sex: Male

DRUGS (4)
  1. DEPAKENE [Suspect]
     Indication: PROSTATE CANCER METASTATIC
     Route: 048
  2. DEPAKENE [Suspect]
  3. ACTOS [Concomitant]
     Indication: PROSTATE CANCER METASTATIC
     Route: 048
  4. AUNE HERBAL MEDICATION [Concomitant]
     Indication: DRUG USE FOR UNKNOWN INDICATION
     Route: 065

REACTIONS (3)
  - LOWER GASTROINTESTINAL HAEMORRHAGE [None]
  - PARKINSONISM [None]
  - UNRESPONSIVE TO STIMULI [None]
